FAERS Safety Report 20759781 (Version 2)
Quarter: 2023Q1

REPORT INFORMATION
  Report Type: Spontaneous
  Country: CA (occurrence: CA)
  Receive Date: 20220427
  Receipt Date: 20230131
  Transmission Date: 20230418
  Serious: Yes (Hospitalization, Other)
  Sender: FDA-Public Use
  Company Number: CA-ALLERGAN-2213374US

PATIENT
  Sex: Male
  Weight: 3 kg

DRUGS (5)
  1. CITALOPRAM HYDROBROMIDE [Suspect]
     Active Substance: CITALOPRAM HYDROBROMIDE
     Indication: Exposure during pregnancy
     Dosage: 40 MG, QD
     Route: 064
  2. QUETIAPINE FUMARATE [Suspect]
     Active Substance: QUETIAPINE FUMARATE
     Indication: Exposure during pregnancy
     Dosage: 25 MG, QD
     Route: 064
  3. CANNABIS SATIVA FLOWERING TOP [Concomitant]
     Active Substance: CANNABIS SATIVA FLOWERING TOP
  4. INSULIN HUMAN [Concomitant]
     Active Substance: INSULIN HUMAN
     Dosage: 10 PLUS 26 IU
     Route: 064
  5. NICOTINE POLACRILEX [Concomitant]
     Active Substance: NICOTINE
     Route: 064

REACTIONS (9)
  - Agitation neonatal [Recovered/Resolved]
  - Drug withdrawal syndrome neonatal [Recovered/Resolved]
  - Finnegan score increased [Recovered/Resolved]
  - Floppy infant [Recovered/Resolved]
  - Infant irritability [Recovered/Resolved]
  - Neonatal hypoxia [Recovered/Resolved]
  - Tremor [Recovered/Resolved]
  - Nausea [Recovered/Resolved]
  - Pregnancy [Unknown]
